FAERS Safety Report 20845084 (Version 1)
Quarter: 2022Q2

REPORT INFORMATION
  Report Type: Report from Study
  Country: US (occurrence: US)
  Receive Date: 20220518
  Receipt Date: 20220518
  Transmission Date: 20220720
  Serious: Yes (Hospitalization)
  Sender: FDA-Public Use
  Company Number: US-ALLERGAN-2216042US

PATIENT
  Sex: Male

DRUGS (1)
  1. ATOGEPANT [Suspect]
     Active Substance: ATOGEPANT
     Indication: Product used for unknown indication

REACTIONS (2)
  - Gait inability [Unknown]
  - Vertigo [Recovering/Resolving]
